FAERS Safety Report 7901393-0 (Version None)
Quarter: 2011Q4

REPORT INFORMATION
  Report Type: 
  Country: None (occurrence: None)
  Receive Date: 20111108
  Receipt Date: 20111103
  Transmission Date: 20120403
  Serious: Yes (Hospitalization)
  Sender: FDA-Public Use
  Company Number: FR-GILEAD-2011-0046222

PATIENT
  Age: 50 Year
  Sex: Male

DRUGS (5)
  1. INFLUENZA VACCINE INACTIVATED [Suspect]
     Dosage: 1 DF, UNK
     Dates: start: 20101201, end: 20101201
  2. VARENICLINE TARTRATE [Suspect]
     Indication: TOBACCO USER
     Dosage: UNK
     Route: 048
     Dates: start: 20101201, end: 20110301
  3. TRUVADA [Suspect]
     Indication: HIV INFECTION
     Dosage: 1 UNK, UNK
     Route: 048
     Dates: start: 20101208
  4. ANAFRANIL [Concomitant]
  5. INTELENCE [Suspect]
     Dosage: 100 MG, UNK
     Route: 048
     Dates: start: 20101208

REACTIONS (1)
  - NARCOLEPSY [None]
